FAERS Safety Report 4461710-3 (Version None)
Quarter: 2004Q3

REPORT INFORMATION
  Report Type: 
  Country: None (occurrence: None)
  Receive Date: 20040924
  Receipt Date: 20040916
  Transmission Date: 20050211
  Serious: Yes (Death, Other)
  Sender: FDA-Public Use
  Company Number: KII-1999-0011977

PATIENT
  Sex: Male

DRUGS (1)
  1. OXYCONTIN [Suspect]
     Indication: PAIN
     Dosage: 120 MG, Q12H

REACTIONS (3)
  - ASTHENIA [None]
  - DRUG DEPENDENCE [None]
  - INADEQUATE ANALGESIA [None]
